FAERS Safety Report 17803540 (Version 1)
Quarter: 2020Q2

REPORT INFORMATION
  Report Type: Spontaneous
  Country: FR (occurrence: FR)
  Receive Date: 20200519
  Receipt Date: 20200519
  Transmission Date: 20200714
  Serious: Yes (Life-Threatening)
  Sender: FDA-Public Use
  Company Number: FR-PFIZER INC-2020191357

PATIENT
  Age: 63 Year
  Sex: Male
  Weight: 90 kg

DRUGS (7)
  1. FLAGYL [METRONIDAZOLE BENZOATE] [Concomitant]
     Active Substance: METRONIDAZOLE BENZOATE
     Dosage: UNK
     Route: 065
     Dates: start: 202002
  2. DAPTOMYCINE ACCORD [Concomitant]
     Active Substance: DAPTOMYCIN
     Indication: SEPSIS
     Dosage: 850 MG, 1X/DAY
     Route: 042
     Dates: start: 20200217, end: 20200303
  3. VANCOMYCINE MYLAN [VANCOMYCIN HYDROCHLORIDE] [Suspect]
     Active Substance: VANCOMYCIN HYDROCHLORIDE
     Indication: SEPSIS
     Dosage: 2.5 G, 1X/DAY
     Route: 042
     Dates: start: 20200303, end: 20200312
  4. CLAFORAN [Concomitant]
     Active Substance: CEFOTAXIME SODIUM
     Dosage: UNK
     Route: 042
     Dates: start: 202002
  5. TAZOCILLINE [Concomitant]
     Active Substance: PIPERACILLIN SODIUM\TAZOBACTAM SODIUM
     Indication: SEPSIS
     Dosage: UNK
     Route: 042
     Dates: start: 20200204
  6. MEROPENEM. [Suspect]
     Active Substance: MEROPENEM
     Indication: SEPSIS
     Dosage: UNK
     Route: 042
     Dates: start: 20200203
  7. AMIKLIN [AMIKACIN] [Concomitant]
     Indication: SEPSIS
     Dosage: 30 MG/KG, 1X/DAY
     Route: 042
     Dates: start: 202002

REACTIONS (1)
  - Drug reaction with eosinophilia and systemic symptoms [Recovering/Resolving]

NARRATIVE: CASE EVENT DATE: 20200310
